FAERS Safety Report 13130219 (Version 1)
Quarter: 2017Q1

REPORT INFORMATION
  Report Type: Spontaneous
  Country: US (occurrence: US)
  Receive Date: 20170119
  Receipt Date: 20170119
  Transmission Date: 20170428
  Serious: No
  Sender: FDA-Public Use
  Company Number: US-GLAXOSMITHKLINE-US2017GSK006512

PATIENT
  Age: 92 Year
  Sex: Male

DRUGS (11)
  1. LOSARTIN [Concomitant]
     Active Substance: LOSARTAN
  2. METOPROLOL. [Concomitant]
     Active Substance: METOPROLOL
  3. ASPIRIN. [Concomitant]
     Active Substance: ASPIRIN
  4. RESTASIS [Concomitant]
     Active Substance: CYCLOSPORINE
  5. OXYTROL [Concomitant]
     Active Substance: OXYBUTYNIN
  6. PLAQUENIL [Concomitant]
     Active Substance: HYDROXYCHLOROQUINE SULFATE
  7. LUMIGAN [Concomitant]
     Active Substance: BIMATOPROST
  8. METHOTREXATE. [Concomitant]
     Active Substance: METHOTREXATE
  9. FOLIC ACID. [Concomitant]
     Active Substance: FOLIC ACID
  10. LEUCOVORIN. [Concomitant]
     Active Substance: LEUCOVORIN
  11. ADVAIR DISKUS [Suspect]
     Active Substance: FLUTICASONE PROPIONATE\SALMETEROL XINAFOATE
     Indication: PRODUCT USED FOR UNKNOWN INDICATION
     Dosage: 1 PUFF(S), BID

REACTIONS (2)
  - Adverse drug reaction [Unknown]
  - Asthenia [Unknown]

NARRATIVE: CASE EVENT DATE: 20160722
